FAERS Safety Report 9677400 (Version 3)
Quarter: 2014Q1

REPORT INFORMATION
  Report Type: Spontaneous
  Country: JP (occurrence: JP)
  Receive Date: 20131108
  Receipt Date: 20140107
  Transmission Date: 20141002
  Serious: Yes (Other)
  Sender: FDA-Public Use
  Company Number: JP-ROCHE-1296937

PATIENT
  Age: 63 Year
  Sex: Male
  Weight: 60 kg

DRUGS (3)
  1. MIRCERA [Suspect]
     Indication: NEPHROGENIC ANAEMIA
     Route: 058
     Dates: start: 20131007, end: 20131007
  2. TARIVID [Suspect]
     Indication: URINARY TRACT INFECTION
     Route: 048
     Dates: start: 20131007, end: 20131010
  3. LOXONIN [Concomitant]
     Indication: URINARY TRACT INFECTION
     Route: 048
     Dates: start: 20131007, end: 20131010

REACTIONS (1)
  - Urticaria [Recovering/Resolving]
